FAERS Safety Report 15231778 (Version 4)
Quarter: 2018Q3

REPORT INFORMATION
  Report Type: Report from Study
  Country: ES (occurrence: ES)
  Receive Date: 20180802
  Receipt Date: 20180912
  Transmission Date: 20181010
  Serious: Yes (Hospitalization)
  Sender: FDA-Public Use
  Company Number: ES-ROCHE-2158740

PATIENT
  Age: 68 Year
  Sex: Female
  Weight: 43.1 kg

DRUGS (4)
  1. FOLIDOCE [Concomitant]
     Active Substance: CYANOCOBALAMIN\FOLIC ACID
     Indication: PREMEDICATION
     Dosage: QD (EVERY DAY)
     Route: 048
     Dates: start: 20180619, end: 20180709
  2. RED BLOOD CELLS [Concomitant]
     Active Substance: HUMAN RED BLOOD CELL
     Indication: ANAEMIA
     Dosage: TRANSFUSION
     Route: 042
     Dates: start: 20180721, end: 20180721
  3. ATEZOLIZUMAB. [Suspect]
     Active Substance: ATEZOLIZUMAB
     Indication: NON-SMALL CELL LUNG CANCER
     Dosage: MOST RECENT DOSE OF ATEZOLIZUMAB PRIOR TO SAES: 09/JUL/2018
     Route: 042
     Dates: start: 20180709
  4. TARDYFERON (SPAIN) [Concomitant]
     Active Substance: FERROUS SULFATE
     Indication: MICROCYTIC ANAEMIA
     Route: 048
     Dates: start: 20180629

REACTIONS (3)
  - Respiratory failure [Recovered/Resolved]
  - Urinary tract infection [Recovering/Resolving]
  - Noninfective encephalitis [Recovering/Resolving]

NARRATIVE: CASE EVENT DATE: 20180718
